FAERS Safety Report 4721813-2 (Version None)
Quarter: 2005Q3

REPORT INFORMATION
  Report Type: 
  Country: None (occurrence: None)
  Receive Date: 20050721
  Receipt Date: 20050427
  Transmission Date: 20060218
  Serious: No
  Sender: FDA-Public Use
  Company Number: US-BRISTOL-MYERS SQUIBB COMPANY-12947610

PATIENT
  Age: 58 Year
  Sex: Female
  Weight: 75 kg

DRUGS (2)
  1. COUMADIN [Suspect]
     Indication: THROMBOSIS
     Dates: start: 20050201
  2. ONE-A-DAY [Suspect]
     Indication: MEDICAL DIET
     Dosage: DATES OF ADMINISTRATION: 2000 TO 09-FEB-2005, 14-FEB-2005 TO 30-MAR-2005, 07-APR-2005 TO CONT.
     Route: 048
     Dates: start: 20000101

REACTIONS (1)
  - INTERNATIONAL NORMALISED RATIO DECREASED [None]
